FAERS Safety Report 4379345-X (Version None)
Quarter: 2004Q2

REPORT INFORMATION
  Report Type: 
  Country: None (occurrence: None)
  Receive Date: 20040610
  Receipt Date: 20040601
  Transmission Date: 20050107
  Serious: Yes (Other)
  Sender: FDA-Public Use
  Company Number: 2002053682

PATIENT
  Age: 46 Year
  Sex: Female
  Weight: 58.514 kg

DRUGS (7)
  1. LOPID [Suspect]
     Indication: BLOOD CHOLESTEROL INCREASED
     Dosage: BID
     Dates: start: 20010601, end: 20010101
  2. BAYCOL [Suspect]
     Indication: BLOOD CHOLESTEROL INCREASED
     Dosage: 0.3 MG DAILY
     Dates: start: 20010601, end: 20010801
  3. DIAZEPAM [Concomitant]
  4. ATORVASTATIN (ATORVASTATIN) [Concomitant]
  5. GENITO URINARY SYSTEM AND SEX HORMONES (GENITO URINARY SYSTEM AND SEX [Concomitant]
  6. ESTRADIOL [Concomitant]
  7. AMOXICILLIN [Concomitant]

REACTIONS (25)
  - ABDOMINAL DISCOMFORT [None]
  - AFFECTIVE DISORDER [None]
  - ANAEMIA [None]
  - ARTHRALGIA [None]
  - CARDIOMYOPATHY [None]
  - CONTUSION [None]
  - DIZZINESS [None]
  - EAR PAIN [None]
  - EXCORIATION [None]
  - FEELING ABNORMAL [None]
  - HYPERLIPIDAEMIA [None]
  - INJURY [None]
  - MALAISE [None]
  - MUSCLE CRAMP [None]
  - MYOPATHY [None]
  - NIGHT SWEATS [None]
  - PYREXIA [None]
  - RENAL DISORDER [None]
  - RENAL INJURY [None]
  - RHABDOMYOLYSIS [None]
  - URINARY TRACT DISORDER [None]
  - URINE ANALYSIS ABNORMAL [None]
  - VISION BLURRED [None]
  - VULVOVAGINAL DRYNESS [None]
  - WEIGHT INCREASED [None]
